FAERS Safety Report 7932770-X (Version None)
Quarter: 2011Q4

REPORT INFORMATION
  Report Type: 
  Country: None (occurrence: None)
  Receive Date: 20111122
  Receipt Date: 20111115
  Transmission Date: 20120403
  Serious: Yes (Hospitalization)
  Sender: FDA-Public Use
  Company Number: US-JNJFOC-20111107973

PATIENT
  Sex: Female
  Weight: 68 kg

DRUGS (2)
  1. MESALAMINE [Concomitant]
  2. REMICADE [Suspect]
     Indication: CROHN'S DISEASE
     Route: 042
     Dates: start: 20081027, end: 20090410

REACTIONS (1)
  - URINARY TRACT INFECTION [None]
